FAERS Safety Report 6913492-0 (Version None)
Quarter: 2010Q3

REPORT INFORMATION
  Report Type: 
  Country: None (occurrence: None)
  Receive Date: 20100805
  Receipt Date: 20100805
  Transmission Date: 20110219
  Serious: Yes (Life-Threatening)
  Sender: FDA-Public Use
  Company Number: None

PATIENT
  Age: 31 Year
  Sex: Female

DRUGS (1)
  1. PNV-HDA SOFTGEL 300MG DHA ACELLA PHARMACE [Suspect]
     Indication: PRENATAL CARE
     Dosage: 1 CAPLET QD PO
     Route: 048
     Dates: start: 20100803, end: 20100803

REACTIONS (2)
  - PHARYNGEAL OEDEMA [None]
  - PRODUCT LABEL CONFUSION [None]
